FAERS Safety Report 14536766 (Version 1)
Quarter: 2018Q1

REPORT INFORMATION
  Report Type: Spontaneous
  Country: US (occurrence: US)
  Receive Date: 20180215
  Receipt Date: 20180215
  Transmission Date: 20180509
  Serious: Yes (Hospitalization, Other)
  Sender: FDA-Public Use
  Company Number: US-ELI_LILLY_AND_COMPANY-US201802003125

PATIENT
  Age: 56 Year
  Sex: Female

DRUGS (2)
  1. LEVEMIR [Concomitant]
     Active Substance: INSULIN DETEMIR
     Dosage: 53 U, DAILY
     Route: 065
  2. TRULICITY [Suspect]
     Active Substance: DULAGLUTIDE
     Indication: PRODUCT USED FOR UNKNOWN INDICATION
     Dosage: UNK, UNKNOWN
     Route: 065
     Dates: start: 201702, end: 201705

REACTIONS (11)
  - Clostridium difficile infection [Recovered/Resolved]
  - Body temperature increased [Recovered/Resolved]
  - Renal disorder [Recovered/Resolved]
  - Ascites [Recovered/Resolved]
  - Infection [Recovered/Resolved]
  - Hepatic steatosis [Unknown]
  - Blood glucose increased [Not Recovered/Not Resolved]
  - Blood glucose decreased [Recovered/Resolved]
  - Lung neoplasm malignant [Recovering/Resolving]
  - Hepatic cancer [Unknown]
  - Peripheral swelling [Recovered/Resolved]

NARRATIVE: CASE EVENT DATE: 201705
